FAERS Safety Report 15466043 (Version 1)
Quarter: 2018Q4

REPORT INFORMATION
  Report Type: Spontaneous
  Country: US (occurrence: US)
  Receive Date: 20181004
  Receipt Date: 20181004
  Transmission Date: 20190204
  Serious: No
  Sender: FDA-Public Use
  Company Number: US-GALDERMA-US18002738

PATIENT
  Age: 33 Year
  Sex: Female

DRUGS (2)
  1. MIRVASO [Suspect]
     Active Substance: BRIMONIDINE TARTRATE
     Indication: ROSACEA
     Dosage: 0.33%
     Route: 061
     Dates: start: 20180207, end: 20180210
  2. UNSPECIFIED CALCIUM PILL [Concomitant]

REACTIONS (1)
  - Rosacea [Recovered/Resolved]

NARRATIVE: CASE EVENT DATE: 20180210
